FAERS Safety Report 17092269 (Version 1)
Quarter: 2019Q4

REPORT INFORMATION
  Report Type: Spontaneous
  Country: US (occurrence: US)
  Receive Date: 20191129
  Receipt Date: 20191129
  Transmission Date: 20200122
  Serious: No
  Sender: FDA-Public Use
  Company Number: US-UCBSA-2018012946

PATIENT
  Age: 4 Decade
  Sex: Female

DRUGS (4)
  1. LEVETIRACETAM. [Suspect]
     Active Substance: LEVETIRACETAM
     Indication: SEIZURE
     Dosage: UNKNOWN DOSE
  2. LEVETIRACETAM. [Suspect]
     Active Substance: LEVETIRACETAM
     Indication: OFF LABEL USE
  3. VALPROIC ACID. [Suspect]
     Active Substance: VALPROIC ACID
     Indication: SEIZURE
     Dosage: UNKNOWN DOSE
  4. PREGABALIN. [Suspect]
     Active Substance: PREGABALIN
     Indication: SEIZURE
     Dosage: UNKNOWN DOSE

REACTIONS (4)
  - Multiple-drug resistance [Recovered/Resolved]
  - Off label use [Unknown]
  - Tremor [Unknown]
  - Irritability [Unknown]
